FAERS Safety Report 24449281 (Version 2)
Quarter: 2024Q4

REPORT INFORMATION
  Report Type: Spontaneous
  Country: PL (occurrence: PL)
  Receive Date: 20241017
  Receipt Date: 20241029
  Transmission Date: 20250115
  Serious: Yes (Other)
  Sender: SANDOZ
  Company Number: None

PATIENT
  Age: 74 Year
  Sex: Male

DRUGS (7)
  1. CARBOPLATIN [Suspect]
     Active Substance: CARBOPLATIN
     Indication: Adenocarcinoma
     Dosage: UNK
     Route: 065
  2. CISPLATIN [Suspect]
     Active Substance: CISPLATIN
     Indication: Adenocarcinoma
     Dosage: UNK
     Route: 065
     Dates: end: 202204
  3. CISPLATIN [Suspect]
     Active Substance: CISPLATIN
     Indication: Non-small cell lung cancer
  4. PEMETREXED [Suspect]
     Active Substance: PEMETREXED
     Indication: Adenocarcinoma
     Dosage: UNK
     Route: 065
  5. PEMBROLIZUMAB [Suspect]
     Active Substance: PEMBROLIZUMAB
     Indication: Adenocarcinoma
     Dosage: UNK
     Route: 065
  6. VINORELBINE [Suspect]
     Active Substance: VINORELBINE TARTRATE
     Indication: Adenocarcinoma
     Dosage: UNK
     Route: 065
  7. VINORELBINE [Suspect]
     Active Substance: VINORELBINE TARTRATE
     Indication: Non-small cell lung cancer

REACTIONS (4)
  - Circulatory collapse [Unknown]
  - Toxicity to various agents [Unknown]
  - Disease progression [Unknown]
  - Pain [Unknown]
